FAERS Safety Report 16155441 (Version 3)
Quarter: 2019Q2

REPORT INFORMATION
  Report Type: Spontaneous
  Country: DZ (occurrence: DZ)
  Receive Date: 20190403
  Receipt Date: 20190419
  Transmission Date: 20190711
  Serious: Yes (Death, Other)
  Sender: FDA-Public Use
  Company Number: DZ-BAXTER-2019BAX006255

PATIENT
  Age: 16 Month
  Sex: Female
  Weight: 12 kg

DRUGS (8)
  1. FENTANYL. [Suspect]
     Active Substance: FENTANYL
     Indication: INDUCTION OF ANAESTHESIA
     Dosage: INDUCTION
     Route: 042
     Dates: start: 20190325, end: 20190325
  2. OXYGEN. [Concomitant]
     Active Substance: OXYGEN
     Indication: PRODUCT USED FOR UNKNOWN INDICATION
     Route: 055
     Dates: start: 20190325, end: 20190325
  3. SEVOFLURANE USP [Suspect]
     Active Substance: SEVOFLURANE
     Dosage: FOR RAISED CONCENTRATION OF SEVOFLURANE 6% DUE TO BRONCHOSPASM AND MAINTAINED
     Route: 055
     Dates: start: 20190325, end: 20190325
  4. FENTANYL. [Suspect]
     Active Substance: FENTANYL
     Indication: MAINTENANCE OF ANAESTHESIA
     Dosage: MAINTENANCE
     Route: 042
     Dates: start: 20190325, end: 20190325
  5. PROPOFOL. [Suspect]
     Active Substance: PROPOFOL
     Indication: INDUCTION OF ANAESTHESIA
     Dosage: INDUCTION
     Route: 042
     Dates: start: 20190325, end: 20190325
  6. SEVOFLURANE USP [Suspect]
     Active Substance: SEVOFLURANE
     Indication: MAINTENANCE OF ANAESTHESIA
     Dosage: FOR MAINTENANCE
     Route: 055
     Dates: start: 20190325, end: 20190325
  7. PROPOFOL. [Suspect]
     Active Substance: PROPOFOL
     Indication: MAINTENANCE OF ANAESTHESIA
     Dosage: MAINTENANCE
     Route: 042
     Dates: start: 20190325, end: 20190325
  8. SEVOFLURANE USP [Suspect]
     Active Substance: SEVOFLURANE
     Indication: SEDATION
     Dosage: FOR SEDATION WITH SEVOFLURANE
     Route: 055
     Dates: start: 20190325, end: 20190325

REACTIONS (2)
  - Bronchospasm [Fatal]
  - Cardiac arrest [Unknown]

NARRATIVE: CASE EVENT DATE: 20190325
